FAERS Safety Report 8233919-4 (Version None)
Quarter: 2012Q1

REPORT INFORMATION
  Report Type: 
  Country: None (occurrence: None)
  Receive Date: 20120326
  Receipt Date: 20120322
  Transmission Date: 20120608
  Serious: Yes (Hospitalization)
  Sender: FDA-Public Use
  Company Number: PHHY2012FR025307

PATIENT
  Sex: Male

DRUGS (2)
  1. ONBREZ [Suspect]
  2. SPIRIVA [Concomitant]

REACTIONS (1)
  - RESPIRATORY DISORDER [None]
